FAERS Safety Report 8842121 (Version 1)
Quarter: 2012Q4

REPORT INFORMATION
  Report Type: 
  Country: GB (occurrence: GB)
  Receive Date: 20121016
  Receipt Date: 20121016
  Transmission Date: 20130627
  Serious: Yes (Other)
  Sender: FDA-Public Use
  Company Number: PHFR2012GB004737

PATIENT
  Age: 56 Year
  Sex: Female

DRUGS (3)
  1. CLOZARIL [Suspect]
     Route: 048
     Dates: start: 20081231
  2. CLOZARIL [Suspect]
     Dosage: 250 mg
     Route: 048
  3. VALPROATE SODIUM [Concomitant]
     Dosage: 400 mg
     Route: 048

REACTIONS (6)
  - Chronic obstructive pulmonary disease [Unknown]
  - Bundle branch block [Unknown]
  - Sinus tachycardia [Unknown]
  - Lower respiratory tract infection [Unknown]
  - Basophil count increased [Recovered/Resolved]
  - Differential white blood cell count abnormal [Unknown]
